FAERS Safety Report 5095682-8 (Version None)
Quarter: 2006Q3

REPORT INFORMATION
  Report Type: 
  Country: None (occurrence: None)
  Receive Date: 20060731
  Receipt Date: 20060428
  Transmission Date: 20061208
  Serious: No
  Sender: FDA-Public Use
  Company Number: 2006PV012974

PATIENT
  Age: 49 Year
  Sex: Male

DRUGS (7)
  1. BYETTA [Suspect]
     Indication: DIABETES MELLITUS NON-INSULIN-DEPENDENT
     Dosage: 5 MCG; BID; SC, SEE IMAGE
     Route: 058
     Dates: start: 20060411, end: 20060413
  2. BYETTA [Suspect]
     Indication: DIABETES MELLITUS NON-INSULIN-DEPENDENT
     Dosage: 5 MCG; BID; SC, SEE IMAGE
     Route: 058
     Dates: start: 20060422, end: 20060427
  3. LASIX [Concomitant]
  4. COREG [Concomitant]
  5. LANOXIN [Concomitant]
  6. SPIRONOLACTONE [Concomitant]
  7. DIOVAN [Concomitant]

REACTIONS (10)
  - ARTHRALGIA [None]
  - DISORIENTATION [None]
  - DISTURBANCE IN ATTENTION [None]
  - DIZZINESS [None]
  - FATIGUE [None]
  - HEADACHE [None]
  - MYALGIA [None]
  - NAUSEA [None]
  - NECK PAIN [None]
  - VOMITING [None]
